FAERS Safety Report 18289303 (Version 1)
Quarter: 2020Q3

REPORT INFORMATION
  Report Type: Spontaneous
  Country: US (occurrence: US)
  Receive Date: 20200921
  Receipt Date: 20200921
  Transmission Date: 20201103
  Serious: Yes (Hospitalization)
  Sender: FDA-Public Use
  Company Number: None

PATIENT
  Age: 63 Year
  Sex: Male
  Weight: 102 kg

DRUGS (2)
  1. ANTI?SARS?COV?2 CONVALESCENT PLASMA (ASCOV2CP) [Concomitant]
     Dates: start: 20200912, end: 20200912
  2. REMDESIVIR. [Suspect]
     Active Substance: REMDESIVIR
     Indication: COVID-19
     Dates: start: 20200905, end: 20200909

REACTIONS (2)
  - Respiratory failure [None]
  - Fatigue [None]

NARRATIVE: CASE EVENT DATE: 20200918
